FAERS Safety Report 6585596-6 (Version None)
Quarter: 2010Q1

REPORT INFORMATION
  Report Type: 
  Country: None (occurrence: None)
  Receive Date: 20100217
  Receipt Date: 20100208
  Transmission Date: 20100710
  Serious: Yes (Hospitalization)
  Sender: FDA-Public Use
  Company Number: DE-ELI_LILLY_AND_COMPANY-DE201002002250

PATIENT
  Sex: Female

DRUGS (5)
  1. BYETTA [Suspect]
     Dosage: 10 UG, 2/D
     Route: 058
     Dates: start: 20091001, end: 20100101
  2. METOPROLOL TARTRATE [Concomitant]
     Dosage: 100 MG, UNKNOWN
  3. RAMIPRIL [Concomitant]
     Dosage: UNK, UNKNOWN
  4. UNIMAX [Concomitant]
     Dosage: 5.5 MG, UNKNOWN
     Route: 065
  5. L-THYROX [Concomitant]
     Dosage: 125 MG, UNKNOWN
     Route: 065

REACTIONS (4)
  - DIZZINESS [None]
  - FEELING ABNORMAL [None]
  - NAUSEA [None]
  - VOMITING [None]
